FAERS Safety Report 4403007-3 (Version None)
Quarter: 2004Q3

REPORT INFORMATION
  Report Type: 
  Country: None (occurrence: None)
  Receive Date: 20040721
  Receipt Date: 20031027
  Transmission Date: 20050211
  Serious: No
  Sender: FDA-Public Use
  Company Number: US-GLAXOSMITHKLINE-A0431775A

PATIENT
  Age: 78 Year
  Sex: Female

DRUGS (3)
  1. IMITREX [Suspect]
     Indication: MIGRAINE
     Dosage: 100MG AS REQUIRED
     Route: 048
     Dates: start: 20031001
  2. ACTONEL [Concomitant]
  3. MOBIC [Concomitant]

REACTIONS (4)
  - ANOREXIA [None]
  - CHEST DISCOMFORT [None]
  - ERYTHEMA [None]
  - NAUSEA [None]
